FAERS Safety Report 6593009-3 (Version None)
Quarter: 2010Q1

REPORT INFORMATION
  Report Type: 
  Country: None (occurrence: None)
  Receive Date: 20100222
  Receipt Date: 20100215
  Transmission Date: 20100710
  Serious: Yes (Hospitalization)
  Sender: FDA-Public Use
  Company Number: HU-B.I. PHARMACEUTICALS,INC./RIDGEFIELD-2010-AP-00059AP

PATIENT
  Age: 85 Year
  Sex: Male
  Weight: 70 kg

DRUGS (6)
  1. SPIRIVA [Suspect]
     Indication: CHRONIC OBSTRUCTIVE PULMONARY DISEASE
     Dosage: 1 X
     Route: 055
     Dates: start: 20080401, end: 20090101
  2. RENITEC [Concomitant]
     Indication: HYPERTENSION
     Dosage: 2 X 2,5
     Dates: start: 20080301
  3. NORMODIPIN [Concomitant]
     Indication: HYPERTENSION
     Dosage: EVENING 5 MG
     Dates: start: 20080301
  4. QUAMATEL [Concomitant]
     Indication: ABDOMINAL PAIN UPPER
     Dosage: EVENING 20 MG
     Dates: start: 20090501
  5. FUROSEMID [Concomitant]
     Indication: CARDIAC FAILURE
     Dosage: WEEKLY 2X1 - 1
     Dates: start: 20090501
  6. FUROSEMID [Concomitant]
     Indication: OEDEMA PERIPHERAL

REACTIONS (2)
  - ABDOMINAL PAIN UPPER [None]
  - CONSTIPATION [None]
